FAERS Safety Report 19481522 (Version 3)
Quarter: 2022Q3

REPORT INFORMATION
  Report Type: Spontaneous
  Country: CA (occurrence: CA)
  Receive Date: 20210701
  Receipt Date: 20220907
  Transmission Date: 20221026
  Serious: Yes (Other)
  Sender: FDA-Public Use
  Company Number: CA-MLMSERVICE-20210618-2950309-1

PATIENT
  Age: 62 Year
  Sex: Female

DRUGS (3)
  1. CELECOXIB [Suspect]
     Active Substance: CELECOXIB
     Dosage: UNK
     Dates: end: 201909
  2. DURVALUMAB [Suspect]
     Active Substance: DURVALUMAB
     Indication: Squamous cell carcinoma
     Dosage: 1500 MG, MONTHLY
     Dates: start: 201705, end: 201909
  3. PREDNISONE [Concomitant]
     Active Substance: PREDNISONE
     Indication: Squamous cell carcinoma
     Dosage: FREQ:24 H;

REACTIONS (2)
  - Pemphigoid [Unknown]
  - Skin toxicity [Unknown]

NARRATIVE: CASE EVENT DATE: 20190901
